FAERS Safety Report 21943023 (Version 2)
Quarter: 2023Q1

REPORT INFORMATION
  Report Type: Spontaneous
  Country: US (occurrence: US)
  Receive Date: 20230202
  Receipt Date: 20230216
  Transmission Date: 20230418
  Serious: No
  Sender: FDA-Public Use
  Company Number: US-009507513-2301USA010478

PATIENT
  Age: 15 Year
  Sex: Female
  Weight: 48.2 kg

DRUGS (1)
  1. WELIREG [Suspect]
     Active Substance: BELZUTIFAN
     Indication: Haemangioblastoma
     Dosage: 120 MILLIGRAM (3 TABLETS) DAILY
     Route: 048
     Dates: start: 20221026

REACTIONS (2)
  - Anaemia [Not Recovered/Not Resolved]
  - Product use issue [Unknown]

NARRATIVE: CASE EVENT DATE: 20221026
